FAERS Safety Report 6646557-1 (Version None)
Quarter: 2010Q1

REPORT INFORMATION
  Report Type: 
  Country: None (occurrence: None)
  Receive Date: 20100323
  Receipt Date: 20100311
  Transmission Date: 20100710
  Serious: Yes (Hospitalization)
  Sender: FDA-Public Use
  Company Number: GB-WATSON-2010-03228

PATIENT

DRUGS (2)
  1. SIMVASTATIN [Suspect]
     Indication: DRUG USE FOR UNKNOWN INDICATION
     Dosage: 40 MG, DAILY
     Route: 048
  2. FUCIDIN                            /00065701/ [Suspect]
     Indication: DRUG USE FOR UNKNOWN INDICATION
     Dosage: 750 MG, UNK
     Route: 048

REACTIONS (3)
  - DRUG INTERACTION [None]
  - MYOGLOBINURIA [None]
  - RHABDOMYOLYSIS [None]
